FAERS Safety Report 11906251 (Version 1)
Quarter: 2016Q1

REPORT INFORMATION
  Report Type: Spontaneous
  Country: US (occurrence: None)
  Receive Date: 20160108
  Receipt Date: 20160108
  Transmission Date: 20160526
  Serious: Yes (Hospitalization)
  Sender: FDA-Public Use
  Company Number: None

PATIENT
  Age: 54 Year
  Sex: Male

DRUGS (2)
  1. RIBAVIRIN 600MG KADMON [Suspect]
     Active Substance: RIBAVIRIN
     Indication: HEPATITIS C
     Dosage: RIBAVIRIN  TWICE DAILY  BY MOUTH
     Route: 048
     Dates: start: 20151201, end: 20160106
  2. SOVALDI [Suspect]
     Active Substance: SOFOSBUVIR
     Indication: HEPATITIS C
     Dosage: SOLVALDI ONCE DAILY BY MOUTH
     Route: 048
     Dates: start: 20151201, end: 20160106

REACTIONS (1)
  - Hallucination [None]

NARRATIVE: CASE EVENT DATE: 20151201
